FAERS Safety Report 15814041 (Version 2)
Quarter: 2019Q1

REPORT INFORMATION
  Report Type: Report from Study
  Country: GB (occurrence: GB)
  Receive Date: 20190111
  Receipt Date: 20190221
  Transmission Date: 20190417
  Serious: Yes (Death, Other)
  Sender: FDA-Public Use
  Company Number: PHHY2019GB003221

PATIENT
  Sex: Male

DRUGS (1)
  1. OMNITROPE [Suspect]
     Active Substance: SOMATROPIN
     Indication: PRODUCT USED FOR UNKNOWN INDICATION
     Dosage: 0.55 MG, QD
     Route: 058

REACTIONS (6)
  - Developmental delay [Unknown]
  - End stage renal disease [Unknown]
  - Protein-losing gastroenteropathy [Unknown]
  - Heart disease congenital [Unknown]
  - Deafness bilateral [Unknown]
  - Death [Fatal]
